FAERS Safety Report 9387512 (Version 5)
Quarter: 2015Q2

REPORT INFORMATION
  Report Type: Spontaneous
  Country: US (occurrence: US)
  Receive Date: 20130708
  Receipt Date: 20150514
  Transmission Date: 20150821
  Serious: Yes (Hospitalization, Other)
  Sender: FDA-Public Use
  Company Number: US-BAYER-2013-078831

PATIENT
  Age: 21 Year
  Sex: Female
  Weight: 58.96 kg

DRUGS (7)
  1. MIRENA [Suspect]
     Active Substance: LEVONORGESTREL
     Indication: CONTRACEPTION
     Dosage: 20 MCG/24HR, CONT
     Route: 015
     Dates: start: 20090319, end: 20110627
  2. PREDNISONE. [Concomitant]
     Active Substance: PREDNISONE
  3. IRON [Concomitant]
     Active Substance: IRON
  4. COLACE [Concomitant]
     Active Substance: DOCUSATE SODIUM
  5. ZOLOFT [Concomitant]
     Active Substance: SERTRALINE HYDROCHLORIDE
  6. CELEXA [Concomitant]
     Active Substance: CITALOPRAM HYDROBROMIDE
     Dosage: 20 MG, QD
     Dates: start: 20101121
  7. PEPCID [Concomitant]
     Active Substance: FAMOTIDINE

REACTIONS (35)
  - Premature labour [None]
  - Cervicitis [None]
  - Pregnancy with contraceptive device [Recovered/Resolved]
  - Medical device pain [Recovered/Resolved]
  - Infection [None]
  - Anxiety [None]
  - Device dislocation [Recovered/Resolved]
  - Thrombocytopenia [None]
  - Toxic shock syndrome [None]
  - Thrombocytopenia [None]
  - Electrolyte imbalance [None]
  - Post-traumatic stress disorder [None]
  - Bradycardia [None]
  - Uterine perforation [Recovered/Resolved]
  - Sepsis [None]
  - Pain [Recovered/Resolved]
  - Coagulopathy [None]
  - Drug ineffective [None]
  - Pyuria [None]
  - Electrocardiogram QT prolonged [None]
  - Postpartum haemorrhage [None]
  - Procedural pain [None]
  - Transaminases increased [None]
  - Insomnia [None]
  - Brief psychotic disorder, with postpartum onset [None]
  - Salpingitis [None]
  - Diarrhoea [None]
  - Injury [Recovered/Resolved]
  - Pyrexia [None]
  - Dysuria [None]
  - Anaemia [None]
  - Device issue [None]
  - Vaginal discharge [None]
  - Emotional distress [None]
  - Postpartum depression [None]

NARRATIVE: CASE EVENT DATE: 20090319
